FAERS Safety Report 6661773-0 (Version None)
Quarter: 2010Q1

REPORT INFORMATION
  Report Type: 
  Country: None (occurrence: None)
  Receive Date: 20100331
  Receipt Date: 20090615
  Transmission Date: 20100710
  Serious: No
  Sender: FDA-Public Use
  Company Number: US-BRISTOL-MYERS SQUIBB COMPANY-14667067

PATIENT
  Sex: Male

DRUGS (5)
  1. ERBITUX [Suspect]
     Route: 065
  2. ELOXATIN [Suspect]
     Route: 042
  3. LEUCOVORIN CALCIUM [Suspect]
     Dosage: SOLUTION
     Route: 042
  4. FLUOROURACIL [Suspect]
     Route: 042
  5. AVASTIN [Suspect]
     Route: 065

REACTIONS (6)
  - ABDOMINAL PAIN [None]
  - BACK PAIN [None]
  - HAEMATOCRIT DECREASED [None]
  - HAEMATURIA [None]
  - HAEMOGLOBIN DECREASED [None]
  - HAEMOLYSIS [None]
